FAERS Safety Report 5658422-7 (Version None)
Quarter: 2008Q1

REPORT INFORMATION
  Report Type: 
  Country: None (occurrence: None)
  Receive Date: 20080310
  Receipt Date: 20070430
  Transmission Date: 20080703
  Serious: Yes (Other)
  Sender: FDA-Public Use
  Company Number: US-BAYER-200710485BCC

PATIENT
  Age: 48 Year
  Sex: Female
  Weight: 56 kg

DRUGS (4)
  1. ALEVE [Suspect]
     Indication: BACK PAIN
     Dosage: TOTAL DAILY DOSE: 220 MG  UNIT DOSE: 220 MG
     Route: 048
     Dates: start: 20070210
  2. ZOLOFT [Suspect]
     Dates: start: 20070209
  3. ZOCOR [Suspect]
     Dates: start: 20070209
  4. TOPAMAX [Suspect]
     Dates: start: 20070209

REACTIONS (8)
  - ANAPHYLACTIC REACTION [None]
  - ANXIETY [None]
  - DYSPNOEA [None]
  - GENERALISED ERYTHEMA [None]
  - PHARYNGEAL OEDEMA [None]
  - PRURITUS [None]
  - SWELLING FACE [None]
  - THERMAL BURN [None]
